FAERS Safety Report 10654039 (Version 1)
Quarter: 2014Q4

REPORT INFORMATION
  Report Type: Spontaneous
  Country: US (occurrence: None)
  Receive Date: 20141215
  Receipt Date: 20141215
  Transmission Date: 20150529
  Serious: Yes (Other)
  Sender: FDA-Public Use
  Company Number: None

PATIENT
  Sex: Female

DRUGS (5)
  1. TRAMADOL [Concomitant]
     Active Substance: TRAMADOL
  2. LOSARTAN [Concomitant]
     Active Substance: LOSARTAN
  3. CYCLOBENZAPRINE [Concomitant]
     Active Substance: CYCLOBENZAPRINE
  4. SUTENT [Suspect]
     Active Substance: SUNITINIB MALATE
     Indication: RENAL CANCER
     Dosage: 25MG, 1X DAILY, ORAL
     Route: 048
     Dates: start: 20141203
  5. TERCONAZOLE. [Concomitant]
     Active Substance: TERCONAZOLE

REACTIONS (2)
  - Constipation [None]
  - Abdominal discomfort [None]
